FAERS Safety Report 10446199 (Version 1)
Quarter: 2014Q3

REPORT INFORMATION
  Report Type: Spontaneous
  Country: FR (occurrence: FR)
  Receive Date: 20140911
  Receipt Date: 20140911
  Transmission Date: 20150326
  Serious: Yes (Hospitalization)
  Sender: FDA-Public Use
  Company Number: FR-ROCHE-1458889

PATIENT
  Age: 75 Year
  Sex: Female
  Weight: 96.5 kg

DRUGS (3)
  1. ROCEPHINE [Suspect]
     Active Substance: CEFTRIAXONE SODIUM
     Indication: LUNG DISORDER
     Route: 042
     Dates: start: 20140421, end: 20140428
  2. ROVAMYCINE [Suspect]
     Active Substance: SPIRAMYCIN
     Indication: LEGIONELLA INFECTION
     Dosage: 2 VIALS EVERY 8 HOURS
     Route: 042
     Dates: start: 20140421, end: 20140428
  3. ROVAMYCINE [Suspect]
     Active Substance: SPIRAMYCIN
     Indication: PRODUCT USED FOR UNKNOWN INDICATION
     Route: 048
     Dates: start: 20140510, end: 20140515

REACTIONS (1)
  - Vascular purpura [Recovering/Resolving]

NARRATIVE: CASE EVENT DATE: 20140510
